FAERS Safety Report 5533242-2 (Version None)
Quarter: 2007Q4

REPORT INFORMATION
  Report Type: 
  Country: None (occurrence: None)
  Receive Date: 20071204
  Receipt Date: 20071127
  Transmission Date: 20080405
  Serious: Yes (Disabling)
  Sender: FDA-Public Use
  Company Number: A0695216A

PATIENT
  Age: 56 Year
  Sex: Female
  Weight: 77.3 kg

DRUGS (2)
  1. LAPATINIB [Suspect]
     Dosage: 1250MG PER DAY
     Route: 048
     Dates: start: 20070312, end: 20070813
  2. CAPECITABINE [Suspect]
     Dosage: 1300MG TWICE PER DAY
     Route: 048
     Dates: start: 20070312, end: 20070813

REACTIONS (5)
  - COUGH [None]
  - DYSPNOEA [None]
  - LOCALISED OEDEMA [None]
  - OEDEMA [None]
  - WHEEZING [None]
